FAERS Safety Report 6968861-X (Version None)
Quarter: 2010Q3

REPORT INFORMATION
  Report Type: 
  Country: None (occurrence: None)
  Receive Date: 20100903
  Receipt Date: 20100903
  Transmission Date: 20110219
  Serious: No
  Sender: FDA-Public Use
  Company Number: None

PATIENT
  Age: 34 Year
  Sex: Male
  Weight: 79.3795 kg

DRUGS (1)
  1. MINOXIDIL EXTRA STRENGTH (FOR MEN) [Suspect]
     Indication: ALOPECIA
     Dosage: ONE DROPPER 2 TIMES DAILY TOP
     Route: 061
     Dates: start: 20020225, end: 20100821

REACTIONS (2)
  - CHEST DISCOMFORT [None]
  - HYPERTENSION [None]
